FAERS Safety Report 8271174-X (Version None)
Quarter: 2012Q1

REPORT INFORMATION
  Report Type: 
  Country: None (occurrence: None)
  Receive Date: 20120308
  Receipt Date: 20111108
  Transmission Date: 20120608
  Serious: Yes (Other)
  Sender: FDA-Public Use
  Company Number: PHEH2011US06312

PATIENT
  Age: 23 Year
  Sex: Male
  Weight: 180 kg

DRUGS (3)
  1. FANAPT [Suspect]
     Indication: CARDIAC FAILURE
     Dosage: 6 MG, BID, ORAL
     Route: 048
     Dates: start: 20110701, end: 20110701
  2. XANAX [Concomitant]
  3. CYMBALTA [Concomitant]

REACTIONS (2)
  - AKATHISIA [None]
  - CONSTIPATION [None]
